FAERS Safety Report 8389839 (Version 6)
Quarter: 2015Q3

REPORT INFORMATION
  Report Type: Report from Study
  Country: US (occurrence: US)
  Receive Date: 20120203
  Receipt Date: 20150827
  Transmission Date: 20151125
  Serious: Yes (Other)
  Sender: FDA-Public Use
  Company Number: PHEH2012US002118

PATIENT
  Age: 19 Year
  Sex: Female
  Weight: 44 kg

DRUGS (14)
  1. CARBATROL [Concomitant]
     Active Substance: CARBAMAZEPINE
     Indication: PRODUCT USED FOR UNKNOWN INDICATION
     Dosage: 200 MG, TID
     Route: 065
  2. TOPAMAX [Concomitant]
     Active Substance: TOPIRAMATE
     Indication: SEIZURE
     Dosage: 25 MG, TID
     Route: 065
  3. MELATON//MELATONIN [Concomitant]
     Indication: PRODUCT USED FOR UNKNOWN INDICATION
     Dosage: 5 MG, UNK
     Route: 065
  4. PRILOSEC [Concomitant]
     Active Substance: OMEPRAZOLE MAGNESIUM
     Indication: ACIDOSIS
     Dosage: 3 MG, UNK
     Route: 065
  5. PREVACID [Concomitant]
     Active Substance: LANSOPRAZOLE
     Indication: PRODUCT USED FOR UNKNOWN INDICATION
     Route: 065
  6. CLARITIN [Concomitant]
     Active Substance: LORATADINE
     Indication: SEASONAL ALLERGY
  7. VITAMIN D [Concomitant]
     Active Substance: CHOLECALCIFEROL
     Indication: PRODUCT USED FOR UNKNOWN INDICATION
     Route: 065
  8. SABRIL [Concomitant]
     Active Substance: VIGABATRIN
     Indication: PRODUCT USED FOR UNKNOWN INDICATION
     Route: 065
  9. KEPPRA [Concomitant]
     Active Substance: LEVETIRACETAM
     Indication: SEIZURE
     Dosage: 500 MG, BID
     Route: 065
  10. AFINITOR [Suspect]
     Active Substance: EVEROLIMUS
     Indication: ASTROCYTOMA, LOW GRADE
     Dosage: 7.5 MG, QD
     Route: 048
     Dates: start: 20110131
  11. KLONOPIN [Concomitant]
     Active Substance: CLONAZEPAM
     Indication: PRODUCT USED FOR UNKNOWN INDICATION
     Route: 065
  12. LEXAPRO [Concomitant]
     Active Substance: ESCITALOPRAM OXALATE
     Indication: ANXIETY
     Dosage: 10 MG, QD
     Route: 065
  13. CLARITIN [Concomitant]
     Active Substance: LORATADINE
     Indication: SNEEZING
     Route: 065
  14. LEXAPRO [Concomitant]
     Active Substance: ESCITALOPRAM OXALATE
     Indication: AGITATION

REACTIONS (6)
  - Cardiac neoplasm unspecified [Unknown]
  - Seizure [Unknown]
  - Seizure [Recovered/Resolved]
  - Lip disorder [Not Recovered/Not Resolved]
  - Flushing [Not Recovered/Not Resolved]
  - Gallbladder enlargement [Unknown]

NARRATIVE: CASE EVENT DATE: 20130603
